FAERS Safety Report 9745591 (Version 1)
Quarter: 2013Q4

REPORT INFORMATION
  Report Type: Spontaneous
  Country: US (occurrence: None)
  Receive Date: 20131205
  Receipt Date: 20131205
  Transmission Date: 20140711
  Serious: Yes (Hospitalization)
  Sender: FDA-Public Use
  Company Number: None

PATIENT
  Age: 67 Year
  Sex: Female

DRUGS (10)
  1. XARELTO [Suspect]
     Indication: PULMONARY EMBOLISM
     Route: 048
     Dates: start: 20131104, end: 20131115
  2. ATIVAN [Concomitant]
  3. ZYPREXA [Concomitant]
  4. DEPAKOTE ER [Concomitant]
  5. INDERAL [Concomitant]
  6. THERAGRAN [Concomitant]
  7. PROTONIX [Concomitant]
  8. CELEXA [Concomitant]
  9. IBUPROFEN [Concomitant]
  10. LOMOTIL [Concomitant]

REACTIONS (1)
  - Rectal ulcer haemorrhage [None]
